FAERS Safety Report 14285380 (Version 2)
Quarter: 2018Q1

REPORT INFORMATION
  Report Type: Spontaneous
  Country: US (occurrence: US)
  Receive Date: 20171214
  Receipt Date: 20180125
  Transmission Date: 20180509
  Serious: No
  Sender: FDA-Public Use
  Company Number: US-PFIZER INC-2017532884

PATIENT
  Age: 55 Year
  Sex: Female

DRUGS (2)
  1. ADVIL [Suspect]
     Active Substance: IBUPROFEN
     Indication: PAIN
     Dosage: 2 TABLETS, 400MG ONCE/DAY SOMETIMES TWICE
     Route: 048
     Dates: start: 2005
  2. ADVIL [Suspect]
     Active Substance: IBUPROFEN
     Indication: HEADACHE
     Dosage: 200MG 2 TABLETS BY MOUTH/ ABOUT 2.5 HOURS LATER,  SHE TOOK 2 MORE
     Route: 048
     Dates: start: 20171211, end: 20171211

REACTIONS (2)
  - Drug ineffective [Recovered/Resolved]
  - Inappropriate schedule of drug administration [Recovered/Resolved]

NARRATIVE: CASE EVENT DATE: 20171210
